FAERS Safety Report 4944562-4 (Version None)
Quarter: 2006Q1

REPORT INFORMATION
  Report Type: 
  Country: None (occurrence: None)
  Receive Date: 20060315
  Receipt Date: 20051026
  Transmission Date: 20060701
  Serious: Yes (Other)
  Sender: FDA-Public Use
  Company Number: PHEH2005US11886

PATIENT
  Age: 59 Year
  Sex: Male

DRUGS (5)
  1. ZOMETA [Suspect]
     Indication: METASTASES TO BONE
     Dosage: UNK, IV Q4WEEKS
     Route: 042
     Dates: start: 20020101
  2. TAXOL [Concomitant]
     Dates: start: 20020101
  3. TAXOTERE [Concomitant]
     Dates: start: 20020101
  4. TAXOTERE [Concomitant]
     Dates: start: 20020101
  5. DEXAMETHASONE TAB [Concomitant]
     Dosage: 10 MG, WEEKLY

REACTIONS (4)
  - BONE DISORDER [None]
  - MASTICATION DISORDER [None]
  - OSTEONECROSIS [None]
  - PAIN IN JAW [None]
